FAERS Safety Report 7190310-X (Version None)
Quarter: 2010Q4

REPORT INFORMATION
  Report Type: 
  Country: None (occurrence: None)
  Receive Date: 20101223
  Receipt Date: 20101209
  Transmission Date: 20110411
  Serious: Yes (Hospitalization)
  Sender: FDA-Public Use
  Company Number: PHHY2010US40851

PATIENT
  Sex: Female

DRUGS (6)
  1. EXJADE [Suspect]
     Indication: SICKLE CELL ANAEMIA
     Dosage: 1500 MG, QD
     Route: 048
     Dates: start: 20090701, end: 20101101
  2. OXYCODONE AND ACETAMINOPHEN [Concomitant]
  3. PRILOSEC [Concomitant]
     Dosage: 10 MG
     Route: 048
  4. HYDROXYUREA [Concomitant]
     Dosage: 500 MG, TID
     Route: 048
  5. HYDROXYUREA [Concomitant]
     Dosage: 1000 MG, DAILY
  6. FOLIC ACID [Concomitant]
     Dosage: 1 MG, DAILY

REACTIONS (4)
  - ANAEMIA [None]
  - FATIGUE [None]
  - MALAISE [None]
  - PNEUMONIA [None]
